FAERS Safety Report 4759799-7 (Version None)
Quarter: 2005Q3

REPORT INFORMATION
  Report Type: 
  Country: None (occurrence: None)
  Receive Date: 20050831
  Receipt Date: 20050816
  Transmission Date: 20060218
  Serious: Yes (Other)
  Sender: FDA-Public Use
  Company Number: USA0508105499

PATIENT
  Age: 60 Year
  Sex: Female

DRUGS (1)
  1. XIGRIS [Suspect]
     Indication: SEPSIS

REACTIONS (3)
  - HAEMATOCRIT DECREASED [None]
  - HAEMORRHAGE INTRACRANIAL [None]
  - NERVOUS SYSTEM DISORDER [None]
